FAERS Safety Report 5614107-4 (Version None)
Quarter: 2008Q1

REPORT INFORMATION
  Report Type: 
  Country: None (occurrence: None)
  Receive Date: 20080205
  Receipt Date: 20080125
  Transmission Date: 20080703
  Serious: Yes (Hospitalization)
  Sender: FDA-Public Use
  Company Number: FR-WYE-G00948208

PATIENT
  Sex: Male
  Weight: 34 kg

DRUGS (5)
  1. ADVIL LIQUI-GELS [Suspect]
     Indication: PYREXIA
     Dosage: UNKNOWN
     Route: 048
     Dates: start: 20071018
  2. ADVIL LIQUI-GELS [Suspect]
     Indication: PHARYNGOLARYNGEAL PAIN
  3. OROPIVALONE [Concomitant]
     Indication: PHARYNGOLARYNGEAL PAIN
     Dosage: UNKNOWN
     Route: 048
     Dates: start: 20071018
  4. PARACETAMOL [Concomitant]
     Indication: PYREXIA
     Dosage: UNKNOWN
     Route: 048
     Dates: start: 20071018
  5. PARACETAMOL [Concomitant]
     Indication: PHARYNGOLARYNGEAL PAIN

REACTIONS (4)
  - LYMPHADENITIS [None]
  - TONSILLAR HYPERTROPHY [None]
  - TONSILLITIS [None]
  - VOMITING [None]
